FAERS Safety Report 6726639-6 (Version None)
Quarter: 2010Q2

REPORT INFORMATION
  Report Type: 
  Country: None (occurrence: None)
  Receive Date: 20100514
  Receipt Date: 20100506
  Transmission Date: 20101027
  Serious: Yes (Death)
  Sender: FDA-Public Use
  Company Number: FR-ABBOTT-10P-056-0636741-00

PATIENT
  Sex: Male

DRUGS (5)
  1. HUMIRA [Suspect]
     Indication: CROHN'S DISEASE
     Dosage: 160 MG LOADING DOSE
     Route: 058
     Dates: start: 20100218, end: 20100218
  2. HUMIRA [Suspect]
     Route: 058
     Dates: start: 20100304, end: 20100304
  3. REMICADE [Concomitant]
     Indication: CROHN'S DISEASE
     Dates: end: 20090501
  4. REMICADE [Concomitant]
     Dates: start: 20090701
  5. REMICADE [Concomitant]

REACTIONS (2)
  - CARDIAC ARREST [None]
  - SUDDEN DEATH [None]
